FAERS Safety Report 10611311 (Version 1)
Quarter: 2014Q4

REPORT INFORMATION
  Report Type: Spontaneous
  Country: US (occurrence: US)
  Receive Date: 20141126
  Receipt Date: 20141126
  Transmission Date: 20150529
  Serious: Yes (Other)
  Sender: FDA-Public Use
  Company Number: US-GLAXOSMITHKLINE-US2014GSK026649

PATIENT
  Age: 65 Year
  Sex: Female

DRUGS (14)
  1. LIPITOR [Concomitant]
     Active Substance: ATORVASTATIN CALCIUM
  2. TOPROL XL [Concomitant]
     Active Substance: METOPROLOL SUCCINATE
  3. LEVEMIR [Concomitant]
     Active Substance: INSULIN DETEMIR
  4. ASPIRIN + CAFFEINE + SALICYLAMIDE [Concomitant]
  5. KADIAN [Concomitant]
     Active Substance: MORPHINE SULFATE
  6. TRAMADOL [Concomitant]
     Active Substance: TRAMADOL
  7. MULTIVITAMIN [Concomitant]
     Active Substance: VITAMINS
  8. MOBIC [Concomitant]
     Active Substance: MELOXICAM
  9. HYCAMTIN [Suspect]
     Active Substance: TOPOTECAN HYDROCHLORIDE
     Indication: OVARIAN CANCER
     Dosage: 8 MG, UNK
     Route: 042
     Dates: start: 20140827
  10. HYDROCHLOROTHIAZIDE. [Concomitant]
     Active Substance: HYDROCHLOROTHIAZIDE
  11. COLACE [Concomitant]
     Active Substance: DOCUSATE SODIUM
  12. HUMALOG [Concomitant]
     Active Substance: INSULIN LISPRO
  13. ALLERGRA [Concomitant]
  14. MIRALAX [Concomitant]
     Active Substance: POLYETHYLENE GLYCOL 3350

REACTIONS (2)
  - Hypomagnesaemia [Not Recovered/Not Resolved]
  - Hypocalcaemia [Not Recovered/Not Resolved]

NARRATIVE: CASE EVENT DATE: 201410
